FAERS Safety Report 4332336-7 (Version None)
Quarter: 2004Q1

REPORT INFORMATION
  Report Type: 
  Country: None (occurrence: None)
  Receive Date: 20040329
  Receipt Date: 20040127
  Transmission Date: 20041129
  Serious: No
  Sender: FDA-Public Use
  Company Number: 04P-163-0248651-00

PATIENT
  Age: 49 Year
  Sex: Female
  Weight: 63.5036 kg

DRUGS (7)
  1. HUMIRA [Suspect]
     Indication: RHEUMATOID ARTHRITIS
     Dosage: 40 MG, 1 IN 1 WK, SUBCUTANEOUS
     Route: 058
     Dates: start: 20030916, end: 20031109
  2. METHOTREXATE [Concomitant]
  3. PRAVASTATIN SODIUM [Concomitant]
  4. LISINOPRIL [Concomitant]
  5. SOY HORMONE [Concomitant]
  6. FOLIC ACID [Concomitant]
  7. LOMOTIL [Concomitant]

REACTIONS (3)
  - COUGH [None]
  - PYREXIA [None]
  - SINUSITIS [None]
